FAERS Safety Report 13726377 (Version 1)
Quarter: 2017Q3

REPORT INFORMATION
  Report Type: Spontaneous
  Country: US (occurrence: US)
  Receive Date: 20170707
  Receipt Date: 20170707
  Transmission Date: 20171127
  Serious: Yes (Hospitalization)
  Sender: FDA-Public Use
  Company Number: US-ASTRAZENECA-2017SE68458

PATIENT
  Sex: Female

DRUGS (2)
  1. FORXIGA [Suspect]
     Active Substance: DAPAGLIFLOZIN
     Indication: TYPE 2 DIABETES MELLITUS
     Dosage: UNKNOWN DOSE
     Route: 048
  2. BYDUREON [Suspect]
     Active Substance: EXENATIDE
     Indication: TYPE 2 DIABETES MELLITUS
     Dosage: UNKNOWN DOSE, ONCE A WEEK
     Route: 065

REACTIONS (6)
  - Decreased appetite [Unknown]
  - Nausea [Unknown]
  - Blood creatinine increased [Unknown]
  - Hypotension [Unknown]
  - Dehydration [Unknown]
  - Vomiting [Unknown]
